FAERS Safety Report 9648388 (Version 1)
Quarter: 2013Q4

REPORT INFORMATION
  Report Type: Report from Study
  Country: US (occurrence: US)
  Receive Date: 20131028
  Receipt Date: 20131028
  Transmission Date: 20140711
  Serious: Yes (Hospitalization)
  Sender: FDA-Public Use
  Company Number: US-SA-2013SA107132

PATIENT
  Sex: Female

DRUGS (1)
  1. AUBAGIO [Suspect]
     Route: 065
     Dates: end: 20131015

REACTIONS (3)
  - Paralysis [Unknown]
  - Multiple sclerosis relapse [Unknown]
  - Drug dose omission [Unknown]
